FAERS Safety Report 25516230 (Version 1)
Quarter: 2025Q3

REPORT INFORMATION
  Report Type: Spontaneous
  Country: US (occurrence: US)
  Receive Date: 20250704
  Receipt Date: 20250704
  Transmission Date: 20251021
  Serious: Yes (Other)
  Sender: BRISTOL-MYERS SQUIBB COMPANY
  Company Number: US-BRISTOL-MYERS SQUIBB COMPANY-2025-094154

PATIENT
  Age: 84 Year
  Sex: Female
  Weight: 54.88 kg

DRUGS (1)
  1. REVLIMID [Suspect]
     Active Substance: LENALIDOMIDE
     Indication: Product used for unknown indication
     Dosage: 2WKSON,2WKSOFF
     Route: 048

REACTIONS (3)
  - Mental status changes [Recovering/Resolving]
  - Blood creatinine decreased [Recovering/Resolving]
  - Renal disorder [Unknown]
